FAERS Safety Report 16996519 (Version 1)
Quarter: 2019Q4

REPORT INFORMATION
  Report Type: Spontaneous
  Country: BR (occurrence: BR)
  Receive Date: 20191106
  Receipt Date: 20191106
  Transmission Date: 20200122
  Serious: Yes (Hospitalization, Other)
  Sender: FDA-Public Use
  Company Number: BR-ABBVIE-19K-020-2989186-00

PATIENT
  Age: 61 Year
  Sex: Female
  Weight: 45 kg

DRUGS (5)
  1. HUMIRA [Suspect]
     Active Substance: ADALIMUMAB
     Indication: RHEUMATOID ARTHRITIS
     Route: 058
     Dates: start: 2009
  2. LEFLUNOMIDE. [Concomitant]
     Active Substance: LEFLUNOMIDE
     Indication: RHEUMATOID ARTHRITIS
     Route: 048
     Dates: start: 2006
  3. DEFLAZACORT [Concomitant]
     Active Substance: DEFLAZACORT
     Indication: INFLAMMATION
     Route: 048
     Dates: start: 1984
  4. HUMIRA [Suspect]
     Active Substance: ADALIMUMAB
     Route: 058
     Dates: end: 20190323
  5. HUMIRA [Suspect]
     Active Substance: ADALIMUMAB
     Route: 058
     Dates: end: 20191021

REACTIONS (23)
  - Blood cholesterol decreased [Recovered/Resolved]
  - White blood cell disorder [Unknown]
  - Hospitalisation [Recovering/Resolving]
  - Obstruction [Recovered/Resolved]
  - Cystitis noninfective [Unknown]
  - Weight decreased [Recovering/Resolving]
  - Blood disorder [Unknown]
  - Spinal osteoarthritis [Recovering/Resolving]
  - Pyrexia [Recovered/Resolved]
  - Obstruction [Recovered/Resolved]
  - Cholelithiasis [Recovering/Resolving]
  - Hypophagia [Unknown]
  - Psoriasis [Not Recovered/Not Resolved]
  - Pain in extremity [Recovered/Resolved]
  - Influenza [Recovered/Resolved]
  - Nerve compression [Recovering/Resolving]
  - Cough [Recovered/Resolved]
  - Pain in extremity [Recovering/Resolving]
  - Pain [Unknown]
  - Cardiac disorder [Recovered/Resolved]
  - Cholecystitis infective [Recovering/Resolving]
  - Diabetes mellitus [Recovering/Resolving]
  - Arthralgia [Recovered/Resolved]

NARRATIVE: CASE EVENT DATE: 201110
